FAERS Safety Report 21936198 (Version 1)
Quarter: 2023Q1

REPORT INFORMATION
  Report Type: Other
  Country: PK (occurrence: None)
  Receive Date: 20230201
  Receipt Date: 20230201
  Transmission Date: 20230418
  Serious: Yes (Other)
  Sender: FDA-Public Use
  Company Number: PK-ROCHE-3274727

PATIENT
  Age: 40 Year
  Sex: Female

DRUGS (1)
  1. HERCEPTIN [Suspect]
     Active Substance: TRASTUZUMAB
     Indication: Breast cancer metastatic
     Dosage: HERCEPTIN 600MG, FOR 18CYCLES /TILL DISEASE PROGRESSION
     Route: 058
     Dates: start: 20230112

REACTIONS (3)
  - Intercepted product prescribing error [Unknown]
  - Breast cancer [Unknown]
  - Breast cancer metastatic [Unknown]

NARRATIVE: CASE EVENT DATE: 20230112
